FAERS Safety Report 24148209 (Version 1)
Quarter: 2024Q3

REPORT INFORMATION
  Report Type: Spontaneous
  Country: US (occurrence: US)
  Receive Date: 20240729
  Receipt Date: 20240729
  Transmission Date: 20241016
  Serious: No
  Sender: SANOFI AVENTIS
  Company Number: US-SA-SAC20240725001064

PATIENT
  Sex: Female
  Weight: 64 kg

DRUGS (6)
  1. DUPIXENT [Suspect]
     Active Substance: DUPILUMAB
     Indication: Dermatitis atopic
     Dosage: 300 MG, QOW
     Route: 058
     Dates: start: 202111
  2. LOPERAMIDE [Concomitant]
     Active Substance: LOPERAMIDE
     Dosage: UNK
  3. BETAMETHASONE DIPROPIONATE [Concomitant]
     Active Substance: BETAMETHASONE DIPROPIONATE
     Dosage: UNK
  4. LEXAPRO [Concomitant]
     Active Substance: ESCITALOPRAM OXALATE
     Dosage: UNK
  5. DICYCLOMINE HYDROCHLORIDE [Concomitant]
     Active Substance: DICYCLOMINE HYDROCHLORIDE
  6. ROSUVASTATIN CALCIUM [Concomitant]
     Active Substance: ROSUVASTATIN CALCIUM

REACTIONS (10)
  - Dermatitis atopic [Not Recovered/Not Resolved]
  - Pruritus [Not Recovered/Not Resolved]
  - Burning sensation [Not Recovered/Not Resolved]
  - Rash macular [Not Recovered/Not Resolved]
  - Blister [Not Recovered/Not Resolved]
  - Therapeutic response shortened [Unknown]
  - Rash [Not Recovered/Not Resolved]
  - Scab [Not Recovered/Not Resolved]
  - Skin fissures [Recovering/Resolving]
  - Inappropriate schedule of product administration [Not Recovered/Not Resolved]
